FAERS Safety Report 8520806 (Version 5)
Quarter: 2014Q1

REPORT INFORMATION
  Report Type: Spontaneous
  Country: US (occurrence: US)
  Receive Date: 20120419
  Receipt Date: 20140314
  Transmission Date: 20141002
  Serious: Yes (Hospitalization, Disabling, Other)
  Sender: FDA-Public Use
  Company Number: US-ASTRAZENECA-2011SE45681

PATIENT
  Age: 45 Year
  Sex: Male
  Weight: 103.9 kg

DRUGS (51)
  1. NEXIUM [Suspect]
     Indication: EROSIVE OESOPHAGITIS
     Route: 048
     Dates: end: 20071004
  2. NEXIUM [Suspect]
     Indication: ULCER HAEMORRHAGE
     Route: 048
     Dates: end: 20071004
  3. NEXIUM [Suspect]
     Indication: EROSIVE OESOPHAGITIS
     Route: 048
     Dates: start: 200701
  4. NEXIUM [Suspect]
     Indication: ULCER HAEMORRHAGE
     Route: 048
     Dates: start: 200701
  5. NEXIUM [Suspect]
     Indication: EROSIVE OESOPHAGITIS
     Route: 048
     Dates: start: 20070118, end: 20070929
  6. NEXIUM [Suspect]
     Indication: ULCER HAEMORRHAGE
     Route: 048
     Dates: start: 20070118, end: 20070929
  7. NEXIUM [Suspect]
     Indication: EROSIVE OESOPHAGITIS
     Route: 048
     Dates: start: 20070120
  8. NEXIUM [Suspect]
     Indication: ULCER HAEMORRHAGE
     Route: 048
     Dates: start: 20070120
  9. NEXIUM [Suspect]
     Indication: EROSIVE OESOPHAGITIS
     Route: 048
     Dates: start: 20070129
  10. NEXIUM [Suspect]
     Indication: ULCER HAEMORRHAGE
     Route: 048
     Dates: start: 20070129
  11. NEXIUM [Suspect]
     Indication: EROSIVE OESOPHAGITIS
     Dosage: BID
     Route: 048
     Dates: start: 200701, end: 20070920
  12. NEXIUM [Suspect]
     Indication: ULCER HAEMORRHAGE
     Dosage: BID
     Route: 048
     Dates: start: 200701, end: 20070920
  13. FERROUS SULPHATE [Concomitant]
     Dates: start: 20070118
  14. FERROUS SULPHATE [Concomitant]
     Dates: start: 20070129
  15. PERCOCET [Concomitant]
     Indication: PAIN
     Dosage: 5/325 1 BID PRN
     Dates: start: 20070709
  16. PERCOCET [Concomitant]
     Indication: PAIN
     Dosage: 5 MG EVERY FOUR TO SIX HOURS
     Dates: start: 200707, end: 2008
  17. MAGNESIUM OXIDE [Concomitant]
     Route: 048
     Dates: start: 20070118
  18. ROBAXIN [Concomitant]
     Dates: start: 200707, end: 2008
  19. ROBAXIN [Concomitant]
     Dates: start: 20070911
  20. NEURONTIN [Concomitant]
     Indication: BACK PAIN
     Dates: start: 200707
  21. NEURONTIN [Concomitant]
     Indication: BACK PAIN
     Route: 048
     Dates: start: 20070917
  22. NEURONTIN [Concomitant]
     Indication: BACK PAIN
     Route: 048
     Dates: start: 20071004
  23. OXYCONTIN [Concomitant]
     Indication: PAIN
     Route: 048
     Dates: start: 200707, end: 2008
  24. TORADOL [Concomitant]
     Dates: start: 200609
  25. MEDROL [Concomitant]
     Dates: start: 200609
  26. ALLEGRA [Concomitant]
     Dosage: 60 TO 120 MG
     Route: 048
     Dates: start: 20071004
  27. OMACOR [Concomitant]
     Indication: BLOOD TRIGLYCERIDES
     Dates: start: 20071004
  28. OMACOR [Concomitant]
     Indication: BLOOD TRIGLYCERIDES
     Dates: start: 2007
  29. REGLAN [Concomitant]
     Indication: NAUSEA
     Dosage: 10 MG EVERY FOUR TO SIX HOURS AS NEEDED
     Route: 048
     Dates: start: 200707, end: 2008
  30. REGLAN [Concomitant]
     Indication: NAUSEA
     Route: 048
     Dates: start: 20070922
  31. REGLAN [Concomitant]
     Indication: NAUSEA
     Route: 048
     Dates: start: 20071004
  32. ZETIA [Concomitant]
     Route: 048
     Dates: start: 20070922
  33. ZETIA [Concomitant]
     Route: 048
     Dates: start: 20071004
  34. TRICOR [Concomitant]
     Indication: BLOOD TRIGLYCERIDES
     Route: 048
     Dates: start: 20070922
  35. TRICOR [Concomitant]
     Indication: BLOOD TRIGLYCERIDES
     Route: 048
     Dates: start: 20071004
  36. TRICOR [Concomitant]
     Indication: BLOOD TRIGLYCERIDES
     Dates: start: 2007
  37. ZOFRAN [Concomitant]
     Route: 048
     Dates: start: 20071004
  38. PHENERGAN [Concomitant]
     Route: 048
     Dates: start: 20071004
  39. CALCIUM [Concomitant]
     Dates: start: 200707, end: 2008
  40. CARAFATE [Concomitant]
  41. VITAMINE D 3 [Concomitant]
     Indication: VITAMIN D DECREASED
     Dates: start: 200707
  42. CRESTOR [Concomitant]
     Indication: BLOOD CHOLESTEROL
     Dates: start: 2007
  43. RANITIDINE [Concomitant]
     Indication: GASTROOESOPHAGEAL REFLUX DISEASE
     Dates: start: 2007
  44. RANITIDINE [Concomitant]
     Indication: PEPTIC ULCER
     Dates: start: 2007
  45. MULTIVITAMIN [Concomitant]
     Indication: NUTRITIONAL SUPPLEMENTATION
     Dosage: DAILY
     Dates: start: 2007
  46. COQLO [Concomitant]
     Indication: SOMATOSTATIN ANALOGUE THERAPY
     Dates: start: 2007
  47. ASPIRIN [Concomitant]
     Indication: CORONARY ARTERY DISEASE
     Dates: start: 2007
  48. TYLENOL PM [Concomitant]
     Indication: BACK PAIN
     Dates: start: 2007
  49. TYLENOL PM [Concomitant]
     Indication: SLEEP DISORDER
     Dates: start: 2007
  50. VITAMIN C [Concomitant]
     Indication: NUTRITIONAL SUPPLEMENTATION
     Dates: start: 2007
  51. FLAXSEED OIL [Concomitant]
     Indication: NUTRITIONAL SUPPLEMENTATION
     Dates: start: 2007

REACTIONS (22)
  - Spinal fracture [Unknown]
  - Pancreatitis acute [Unknown]
  - Upper gastrointestinal haemorrhage [Unknown]
  - Spinal compression fracture [Unknown]
  - Pathological fracture [Unknown]
  - Compression fracture [Unknown]
  - Thoracic vertebral fracture [Unknown]
  - Osteoporosis [Unknown]
  - Bone disorder [Unknown]
  - Fracture [Unknown]
  - Rib fracture [Unknown]
  - Osteoarthritis [Unknown]
  - Nephrolithiasis [Unknown]
  - Body height decreased [Unknown]
  - Weight increased [Unknown]
  - Dyspepsia [Unknown]
  - Androgen deficiency [Unknown]
  - Vitamin D deficiency [Unknown]
  - Hypogonadism [Unknown]
  - Nausea [Unknown]
  - Arthralgia [Unknown]
  - Rash [Unknown]
